FAERS Safety Report 7545916-2 (Version None)
Quarter: 2011Q2

REPORT INFORMATION
  Report Type: 
  Country: None (occurrence: None)
  Receive Date: 20110607
  Receipt Date: 20110523
  Transmission Date: 20111010
  Serious: Yes (Hospitalization)
  Sender: FDA-Public Use
  Company Number: 2011-1636

PATIENT
  Age: 46 Year
  Sex: Male

DRUGS (7)
  1. ERGENYL CHRONO 500 (ERGENYL CHRONO) [Concomitant]
  2. MIRTAZAPINE [Concomitant]
  3. GABAPENTIN [Concomitant]
  4. CITALOPRAM 40 (CITALOPRAM) [Suspect]
     Indication: PRODUCT USED FOR UNKNOWN INDICATION
     Dates: start: 20100601
  5. KEPPRA [Concomitant]
  6. BOTULINUM TOXIN TYPE A NOS (BOTULINUM TOXIN TYPE A) (BOTULINUM TOXIN T [Suspect]
     Indication: PRODUCT USED FOR UNKNOWN INDICATION
     Dosage: SINGLE CYCLE
     Dates: start: 20090101, end: 20090101
  7. CARBAMAZEPINE [Suspect]
     Indication: PRODUCT USED FOR UNKNOWN INDICATION
     Dates: start: 20100801

REACTIONS (2)
  - MEMORY IMPAIRMENT [None]
  - MYOCLONUS [None]
